FAERS Safety Report 5097061-6 (Version None)
Quarter: 2006Q3

REPORT INFORMATION
  Report Type: 
  Country: None (occurrence: None)
  Receive Date: 20060901
  Receipt Date: 20060822
  Transmission Date: 20061208
  Serious: Yes (Hospitalization)
  Sender: FDA-Public Use
  Company Number: 2006103734

PATIENT
  Sex: Male

DRUGS (1)
  1. MACUGEN [Suspect]
     Indication: MACULAR DEGENERATION
     Dosage: 0.3 MG (0.3 MG, 1 IN 45 D)
     Dates: start: 20060802

REACTIONS (2)
  - LEUKOPENIA [None]
  - PYREXIA [None]
